FAERS Safety Report 13613878 (Version 1)
Quarter: 2017Q2

REPORT INFORMATION
  Report Type: Spontaneous
  Country: US (occurrence: US)
  Receive Date: 20170606
  Receipt Date: 20170606
  Transmission Date: 20170830
  Serious: No
  Sender: FDA-Public Use
  Company Number: US-TEVA-733441ACC

PATIENT
  Age: 51 Year
  Sex: Female
  Weight: 54.48 kg

DRUGS (1)
  1. MINOXIDIL TOPICAL SOLUTION MN [Suspect]
     Active Substance: MINOXIDIL
     Indication: ALOPECIA
     Dosage: SOLUTION
     Route: 061
     Dates: start: 201611

REACTIONS (3)
  - Heart rate increased [Unknown]
  - Dizziness [Unknown]
  - Intentional product misuse [None]

NARRATIVE: CASE EVENT DATE: 201611
